FAERS Safety Report 4421099-2 (Version None)
Quarter: 2004Q3

REPORT INFORMATION
  Report Type: 
  Country: None (occurrence: None)
  Receive Date: 20040707
  Receipt Date: 20040423
  Transmission Date: 20050211
  Serious: Yes (Other)
  Sender: FDA-Public Use
  Company Number: 368133

PATIENT
  Sex: Male

DRUGS (5)
  1. FUZEON [Suspect]
     Dosage: OTHER
     Route: 050
     Dates: start: 20040215
  2. INVIRASE [Concomitant]
  3. NORVIR [Concomitant]
  4. VIDEX [Concomitant]
  5. ZERIT [Concomitant]

REACTIONS (6)
  - ABDOMINAL PAIN [None]
  - ILL-DEFINED DISORDER [None]
  - INJECTION SITE HAEMORRHAGE [None]
  - LIPIDS INCREASED [None]
  - NODULE [None]
  - SPLENOMEGALY [None]
